FAERS Safety Report 7669750-8 (Version None)
Quarter: 2011Q3

REPORT INFORMATION
  Report Type: 
  Country: None (occurrence: None)
  Receive Date: 20110808
  Receipt Date: 20110802
  Transmission Date: 20111222
  Serious: Yes (Hospitalization, Disabling)
  Sender: FDA-Public Use
  Company Number: NL-TEVA-294616USA

PATIENT
  Sex: Female

DRUGS (2)
  1. PIMOZIDE TABLETS [Suspect]
     Indication: PSYCHOTIC DISORDER
     Dosage: 3 MILLIGRAM;
     Dates: start: 20010101
  2. ANTIDEPRESSANT (NOS) [Concomitant]

REACTIONS (1)
  - CEREBROVASCULAR ACCIDENT [None]
